FAERS Safety Report 23457185 (Version 5)
Quarter: 2024Q1

REPORT INFORMATION
  Report Type: Spontaneous
  Country: US (occurrence: US)
  Receive Date: 20240130
  Receipt Date: 20240315
  Transmission Date: 20240409
  Serious: No
  Sender: FDA-Public Use
  Company Number: US-PFIZER INC-202400007959

PATIENT
  Age: 59 Year
  Sex: Female
  Weight: 90.72 kg

DRUGS (3)
  1. SOMATROPIN [Suspect]
     Active Substance: SOMATROPIN
     Indication: Growth hormone deficiency
     Dosage: INJECT 1 SYRINGE UNDER THE SKIN
     Dates: start: 20240106
  2. SOMATROPIN [Suspect]
     Active Substance: SOMATROPIN
     Dosage: INJECT 1 SYRINGE UNDER THE SKIN
     Dates: start: 20240107
  3. SOMATROPIN [Suspect]
     Active Substance: SOMATROPIN
     Dosage: 0.4 MG, DAILY

REACTIONS (9)
  - Product communication issue [Unknown]
  - Accidental exposure to product [Unknown]
  - Exposure via skin contact [Unknown]
  - Device difficult to use [Unknown]
  - Device issue [Unknown]
  - Liquid product physical issue [Unknown]
  - Injection site discharge [Unknown]
  - Injection site discomfort [Unknown]
  - Incorrect dose administered by device [Unknown]
